FAERS Safety Report 17042054 (Version 1)
Quarter: 2019Q4

REPORT INFORMATION
  Report Type: Spontaneous
  Country: GB (occurrence: GB)
  Receive Date: 20191118
  Receipt Date: 20191118
  Transmission Date: 20200122
  Serious: Yes (Hospitalization)
  Sender: FDA-Public Use
  Company Number: GB-TEVA-2019-GB-1137365

PATIENT
  Age: 7 Year
  Sex: Male

DRUGS (5)
  1. LEVETIRACETAM. [Concomitant]
     Active Substance: LEVETIRACETAM
  2. EPILIM [Concomitant]
     Active Substance: VALPROATE SODIUM
  3. SODIUM VALPROATE [Suspect]
     Active Substance: VALPROATE SODIUM
  4. MELATONIN [Concomitant]
     Active Substance: MELATONIN
  5. METHYLPHENIDATE HYDROCHLORIDE. [Concomitant]
     Active Substance: METHYLPHENIDATE HYDROCHLORIDE

REACTIONS (3)
  - Vomiting [Unknown]
  - Product substitution issue [Unknown]
  - Seizure [Recovered/Resolved]
